FAERS Safety Report 26174043 (Version 1)
Quarter: 2025Q4

REPORT INFORMATION
  Report Type: Spontaneous
  Country: US (occurrence: US)
  Receive Date: 20251218
  Receipt Date: 20251218
  Transmission Date: 20260118
  Serious: No
  Sender: ALVOGEN
  Company Number: US-ALVOGEN-2025096465

PATIENT
  Sex: Female

DRUGS (2)
  1. FENTANYL [Suspect]
     Active Substance: FENTANYL
     Indication: Product used for unknown indication
     Dosage: PREVIOUS BOX, THROWN AWAY
  2. FENTANYL [Suspect]
     Active Substance: FENTANYL
     Indication: Product used for unknown indication
     Dosage: EXPIRY DATE: AUG-2027, CURRENT BOX?25 MCG/HR

REACTIONS (3)
  - Device physical property issue [Unknown]
  - Device malfunction [Unknown]
  - Product dose omission issue [Unknown]
